FAERS Safety Report 5869600-6 (Version None)
Quarter: 2008Q3

REPORT INFORMATION
  Report Type: 
  Country: None (occurrence: None)
  Receive Date: 20080904
  Receipt Date: 20080101
  Transmission Date: 20090109
  Serious: No
  Sender: FDA-Public Use
  Company Number: US-KINGPHARMUSA00001-K200800013

PATIENT

DRUGS (10)
  1. CYTOMEL [Suspect]
     Indication: HYPOTHYROIDISM
     Dosage: 10 MCG, TWO 5 MCG TABLET IN AM AND THEN 9 HOURS LATER,BID
     Route: 048
     Dates: start: 20020101
  2. LEVOXYL [Suspect]
     Indication: HYPOTHYROIDISM
     Dosage: 137 MCG, QD
     Route: 048
     Dates: start: 20010101
  3. LEVOXYL [Suspect]
     Dosage: 137 MCG, TWO 75 MCG TABLETS CUTTING SOME OFF OF ONE TABLET, QD
     Route: 048
     Dates: start: 20010101
  4. PREFEST [Suspect]
     Indication: OESTROGEN REPLACEMENT THERAPY
     Dosage: UNK, UNK
     Route: 048
     Dates: start: 20050101
  5. ACTIVELLA       /00876401/ [Concomitant]
     Indication: OESTROGEN REPLACEMENT THERAPY
     Route: 048
  6. VIVELLE  DOT     /00045401/ [Concomitant]
     Indication: OESTROGEN REPLACEMENT THERAPY
     Route: 023
  7. VITAMIN TAB [Concomitant]
     Indication: VITAMIN SUPPLEMENTATION
     Dosage: UNK, QD
     Route: 048
  8. CALCIUM [Concomitant]
     Indication: MINERAL SUPPLEMENTATION
     Dosage: UNK, QD
     Route: 048
  9. PREMPRO [Concomitant]
     Indication: OESTROGEN REPLACEMENT THERAPY
     Route: 048
     Dates: start: 20071201
  10. PREMARIN [Concomitant]
     Indication: OESTROGEN REPLACEMENT THERAPY
     Route: 061

REACTIONS (10)
  - DRUG INEFFECTIVE [None]
  - EYE SWELLING [None]
  - FLUID RETENTION [None]
  - JOINT SWELLING [None]
  - ORAL DISCOMFORT [None]
  - RASH MACULAR [None]
  - SKIN DISCOMFORT [None]
  - SKIN DISORDER [None]
  - TRI-IODOTHYRONINE INCREASED [None]
  - WEIGHT INCREASED [None]
